FAERS Safety Report 17556558 (Version 1)
Quarter: 2020Q1

REPORT INFORMATION
  Report Type: Spontaneous
  Country: US (occurrence: US)
  Receive Date: 20200311
  Receipt Date: 20200311
  Transmission Date: 20200409
  Serious: No
  Sender: FDA-Public Use
  Company Number: None

PATIENT
  Age: 64 Year
  Sex: Female

DRUGS (1)
  1. BOTOX [Suspect]
     Active Substance: ONABOTULINUMTOXINA
     Indication: MIGRAINE
     Dosage: ?          OTHER FREQUENCY:EVERY 90 DAYS;OTHER ROUTE:IM?
     Dates: start: 20200218, end: 20200218

REACTIONS (2)
  - Throat tightness [None]
  - Injection related reaction [None]

NARRATIVE: CASE EVENT DATE: 20200218
